FAERS Safety Report 8049881 (Version 3)
Quarter: 2013Q2

REPORT INFORMATION
  Report Type: Report from Study
  Country: US (occurrence: US)
  Receive Date: 20110722
  Receipt Date: 20130410
  Transmission Date: 20140414
  Serious: Yes (Hospitalization)
  Sender: FDA-Public Use
  Company Number: US-JNJFOC-20110706797

PATIENT
  Age: 13 Year
  Sex: Male
  Weight: 35 kg

DRUGS (10)
  1. REMICADE [Suspect]
     Indication: INFLAMMATORY BOWEL DISEASE
     Route: 042
     Dates: start: 20110110
  2. REMICADE [Suspect]
     Indication: INFLAMMATORY BOWEL DISEASE
     Route: 042
     Dates: start: 20101227
  3. CIMZIA [Suspect]
     Indication: PRODUCT USED FOR UNKNOWN INDICATION
     Route: 065
     Dates: start: 20101028, end: 20101217
  4. PROBIOTICS [Concomitant]
  5. FERROUS SULFATE [Concomitant]
  6. JUICE PLUS [Concomitant]
  7. CALCIUM [Concomitant]
  8. VITAMIN B12 [Concomitant]
  9. FISH OIL [Concomitant]
  10. VITAMIN D [Concomitant]

REACTIONS (2)
  - Small intestinal obstruction [Recovered/Resolved]
  - Clostridium difficile infection [Recovered/Resolved]
